FAERS Safety Report 6639325-8 (Version None)
Quarter: 2010Q1

REPORT INFORMATION
  Report Type: 
  Country: None (occurrence: None)
  Receive Date: 20100315
  Receipt Date: 20100225
  Transmission Date: 20100710
  Serious: Yes (Death)
  Sender: FDA-Public Use
  Company Number: 2010VX000059

PATIENT
  Age: 37 Year
  Sex: Female
  Weight: 66.2252 kg

DRUGS (2)
  1. DIASTAT [Suspect]
     Indication: DRUG USE FOR UNKNOWN INDICATION
  2. HYDROCODONE BITARTRATE AND ACETAMINOPHEN [Suspect]
     Indication: DRUG USE FOR UNKNOWN INDICATION

REACTIONS (12)
  - ACCIDENTAL DEATH [None]
  - ANOXIC ENCEPHALOPATHY [None]
  - BRAIN HERNIATION [None]
  - BRAIN OEDEMA [None]
  - CARDIO-RESPIRATORY ARREST [None]
  - DRUG ABUSE [None]
  - DRUG TOXICITY [None]
  - HAEMODIALYSIS [None]
  - HYPOGLYCAEMIA [None]
  - MULTI-ORGAN FAILURE [None]
  - PNEUMONIA [None]
  - RENAL FAILURE [None]
